FAERS Safety Report 5283797-0 (Version None)
Quarter: 2007Q2

REPORT INFORMATION
  Report Type: 
  Country: None (occurrence: None)
  Receive Date: 20070402
  Receipt Date: 20070326
  Transmission Date: 20071010
  Serious: Yes (Other)
  Sender: FDA-Public Use
  Company Number: JP-BOEHRINGER INGELHEIM PHARMACEUTICALS, INC.-2007-BP-04404NB

PATIENT
  Age: 60 Year
  Sex: Male

DRUGS (7)
  1. BI-SIFROL TABLETS [Suspect]
     Indication: PARKINSON'S DISEASE
     Route: 048
  2. CABASER [Suspect]
     Indication: PARKINSON'S DISEASE
     Route: 048
  3. MADOPAR [Suspect]
     Indication: PARKINSON'S DISEASE
     Route: 048
     Dates: start: 20070101
  4. FP [Suspect]
     Indication: PARKINSON'S DISEASE
     Route: 048
     Dates: start: 20070201
  5. ARTANE [Suspect]
     Indication: PARKINSON'S DISEASE
     Route: 048
  6. PERMAX [Suspect]
     Indication: PARKINSON'S DISEASE
     Route: 048
  7. INTERFERON [Concomitant]
     Indication: HEPATITIS C
     Dates: start: 20070101

REACTIONS (2)
  - DELIRIUM [None]
  - NEUROLEPTIC MALIGNANT SYNDROME [None]
